FAERS Safety Report 18251346 (Version 1)
Quarter: 2020Q3

REPORT INFORMATION
  Report Type: Spontaneous
  Country: IT (occurrence: IT)
  Receive Date: 20200910
  Receipt Date: 20200910
  Transmission Date: 20201103
  Serious: Yes (Other)
  Sender: FDA-Public Use
  Company Number: IT-TEVA-2020-IT-1824536

PATIENT
  Age: 48 Year
  Sex: Female

DRUGS (1)
  1. VENLAFAXINE [Suspect]
     Active Substance: VENLAFAXINE HYDROCHLORIDE
     Indication: DEPRESSION
     Dosage: 1 DOSAGEFORM
     Route: 048

REACTIONS (3)
  - Skin exfoliation [Unknown]
  - Erythema [Unknown]
  - Trunk injury [Unknown]

NARRATIVE: CASE EVENT DATE: 20180108
